FAERS Safety Report 8871312 (Version 3)
Quarter: 2012Q4

REPORT INFORMATION
  Report Type: Report from Study
  Country: BR (occurrence: BR)
  Receive Date: 20121029
  Receipt Date: 20121211
  Transmission Date: 20130627
  Serious: Yes (Hospitalization, Other)
  Sender: FDA-Public Use
  Company Number: BR-US-EMD SERONO, INC.-7169493

PATIENT
  Age: 65 None
  Sex: Female

DRUGS (10)
  1. REBIF [Suspect]
     Indication: RELAPSING-REMITTING MULTIPLE SCLEROSIS
     Dates: start: 20110330, end: 20120824
  2. REBIF [Suspect]
     Dates: start: 20120913
  3. IBUPROFEN [Concomitant]
     Indication: PREMEDICATION
  4. HYDROCHLOROTHIAZIDE [Concomitant]
     Indication: PRODUCT USED FOR UNKNOWN INDICATION
  5. RETEMIC [Concomitant]
     Indication: PRODUCT USED FOR UNKNOWN INDICATION
  6. ATENOLOL [Concomitant]
     Indication: PRODUCT USED FOR UNKNOWN INDICATION
  7. ENALAPRIL [Concomitant]
     Indication: PRODUCT USED FOR UNKNOWN INDICATION
  8. MUVINLAX [Concomitant]
     Indication: PRODUCT USED FOR UNKNOWN INDICATION
  9. AMITRIPTYLINE [Concomitant]
     Indication: PRODUCT USED FOR UNKNOWN INDICATION
  10. CEPHALEXIN [Concomitant]
     Indication: PRODUCT USED FOR UNKNOWN INDICATION

REACTIONS (14)
  - Contusion [Unknown]
  - Fall [Unknown]
  - Cerebral microhaemorrhage [Unknown]
  - Urinary tract infection [Unknown]
  - Urinary retention [Unknown]
  - Confusional state [Unknown]
  - Memory impairment [Unknown]
  - Gait disturbance [Unknown]
  - Pain in extremity [Unknown]
  - Sensation of heaviness [Not Recovered/Not Resolved]
  - Syncope [Unknown]
  - Injury [Not Recovered/Not Resolved]
  - Headache [Recovered/Resolved]
  - Injection site erythema [Recovered/Resolved]
